FAERS Safety Report 19071670 (Version 1)
Quarter: 2021Q1

REPORT INFORMATION
  Report Type: Report from Study
  Country: KR (occurrence: KR)
  Receive Date: 20210330
  Receipt Date: 20210330
  Transmission Date: 20210420
  Serious: Yes (Other)
  Sender: FDA-Public Use
  Company Number: KR-ASTELLAS-2019US011967

PATIENT
  Age: 79 Year
  Sex: Male

DRUGS (12)
  1. MAGNESIUM OXIDE. [Concomitant]
     Active Substance: MAGNESIUM OXIDE
     Indication: CONSTIPATION
     Route: 048
  2. DIPHERELINE [Concomitant]
     Active Substance: TRIPTORELIN ACETATE
     Route: 065
     Dates: start: 20181206, end: 20181206
  3. IRCODON [Concomitant]
     Active Substance: OXYCODONE HYDROCHLORIDE
     Indication: PROSTATE CANCER
     Route: 065
  4. TARGIN [Concomitant]
     Active Substance: NALOXONE HYDROCHLORIDE\OXYCODONE HYDROCHLORIDE
     Indication: PROSTATE CANCER
     Dosage: 1 DF (10/5 MG), ONCE DAILY
     Route: 048
  5. ENZALUTAMIDE [Suspect]
     Active Substance: ENZALUTAMIDE
     Indication: HORMONE-REFRACTORY PROSTATE CANCER
     Route: 048
     Dates: start: 20180403, end: 20180430
  6. DIPHERELINE [Concomitant]
     Active Substance: TRIPTORELIN ACETATE
     Indication: PROSTATE CANCER
     Route: 065
     Dates: start: 20180403, end: 20180403
  7. LANSTON [Concomitant]
     Active Substance: LANSOPRAZOLE
     Indication: PROPHYLAXIS
     Route: 048
  8. ENZALUTAMIDE [Suspect]
     Active Substance: ENZALUTAMIDE
     Route: 048
     Dates: start: 20180501
  9. ENAFON [Concomitant]
     Indication: PROPHYLAXIS
     Route: 048
  10. EUPATILIN [Concomitant]
     Indication: PROSTATE CANCER
     Route: 048
  11. DIPHERELINE [Concomitant]
     Active Substance: TRIPTORELIN ACETATE
     Route: 065
     Dates: start: 20180626, end: 20180626
  12. DIPHERELINE [Concomitant]
     Active Substance: TRIPTORELIN ACETATE
     Route: 065
     Dates: start: 20180918, end: 20180918

REACTIONS (2)
  - Skin warm [Recovering/Resolving]
  - Fatigue [Recovering/Resolving]

NARRATIVE: CASE EVENT DATE: 20180430
